FAERS Safety Report 9731419 (Version 1)
Quarter: 2013Q4

REPORT INFORMATION
  Report Type: Spontaneous
  Country: CA (occurrence: CA)
  Receive Date: 20131203
  Receipt Date: 20131203
  Transmission Date: 20140711
  Serious: Yes (Other)
  Sender: FDA-Public Use
  Company Number: CA-BAYER-2013-143650

PATIENT
  Age: 62 Year
  Sex: Female
  Weight: 68.93 kg

DRUGS (1)
  1. GADOVIST [Suspect]
     Dosage: UNK
     Route: 042
     Dates: start: 20131121, end: 20131121

REACTIONS (5)
  - Malaise [Unknown]
  - Feeling hot [Unknown]
  - Shock [Unknown]
  - Tremor [Unknown]
  - Nausea [Unknown]
